FAERS Safety Report 6607156-0 (Version None)
Quarter: 2010Q1

REPORT INFORMATION
  Report Type: 
  Country: None (occurrence: None)
  Receive Date: 20100212
  Receipt Date: 20091020
  Transmission Date: 20100710
  Serious: No
  Sender: FDA-Public Use
  Company Number: 1000009587

PATIENT
  Age: 67 Year
  Sex: Female

DRUGS (4)
  1. SAVELLA [Suspect]
     Indication: FIBROMYALGIA
     Dosage: 12.5 MG (12.5 MG, 1 IN 1 D); 25; 50; 100 (12.5; 25; 50 MG, 2 IN 1 D), MG ORAL
     Route: 048
     Dates: start: 20091006, end: 20091006
  2. SAVELLA [Suspect]
     Indication: FIBROMYALGIA
     Dosage: 12.5 MG (12.5 MG, 1 IN 1 D); 25; 50; 100 (12.5; 25; 50 MG, 2 IN 1 D), MG ORAL
     Route: 048
     Dates: start: 20091007, end: 20091008
  3. SAVELLA [Suspect]
     Indication: FIBROMYALGIA
     Dosage: 12.5 MG (12.5 MG, 1 IN 1 D); 25; 50; 100 (12.5; 25; 50 MG, 2 IN 1 D), MG ORAL
     Route: 048
     Dates: start: 20091009, end: 20091012
  4. SAVELLA [Suspect]
     Indication: FIBROMYALGIA
     Dosage: 12.5 MG (12.5 MG, 1 IN 1 D); 25; 50; 100 (12.5; 25; 50 MG, 2 IN 1 D), MG ORAL
     Route: 048
     Dates: start: 20091013

REACTIONS (4)
  - CHILLS [None]
  - FATIGUE [None]
  - HOT FLUSH [None]
  - IRRITABILITY [None]
